FAERS Safety Report 4852949-3 (Version None)
Quarter: 2005Q4

REPORT INFORMATION
  Report Type: 
  Country: None (occurrence: None)
  Receive Date: 20051212
  Receipt Date: 20051122
  Transmission Date: 20060501
  Serious: Yes (Hospitalization, Other)
  Sender: FDA-Public Use
  Company Number: US200511002840

PATIENT
  Age: 64 Year
  Sex: Female
  Weight: 43.5 kg

DRUGS (6)
  1. EVISTA [Suspect]
     Indication: OSTEOPOROSIS
     Dates: start: 19970101, end: 20051101
  2. FORTEO [Suspect]
     Indication: OSTEOPOROSIS
     Dosage: EACH MORNING
     Dates: start: 20051109
  3. CALCIUM (CALCIUM) [Concomitant]
  4. AMBIEN [Concomitant]
  5. FOSAMAX [Concomitant]
  6. FORTEO PEN (FORTEO PEN) PEN, DISPOSABLE [Concomitant]

REACTIONS (7)
  - BODY HEIGHT DECREASED [None]
  - CARCINOEMBRYONIC ANTIGEN INCREASED [None]
  - COLON CANCER [None]
  - INSOMNIA [None]
  - NAUSEA [None]
  - PHARMACEUTICAL PRODUCT COMPLAINT [None]
  - SPINAL FRACTURE [None]
